FAERS Safety Report 23554445 (Version 1)
Quarter: 2024Q1

REPORT INFORMATION
  Report Type: Spontaneous
  Country: US (occurrence: US)
  Receive Date: 20240222
  Receipt Date: 20240222
  Transmission Date: 20240410
  Serious: No
  Sender: FDA-Public Use
  Company Number: US-ELI_LILLY_AND_COMPANY-US202402012896

PATIENT
  Age: 46 Year
  Sex: Male

DRUGS (1)
  1. HUMALOG [Suspect]
     Active Substance: INSULIN LISPRO
     Indication: Type 2 diabetes mellitus
     Dosage: 21 U, UNKNOWN
     Route: 065

REACTIONS (6)
  - Blood glucose increased [Unknown]
  - Incorrect dose administered [Unknown]
  - Hot flush [Unknown]
  - Injection site urticaria [Unknown]
  - Injection site pain [Unknown]
  - Injection site mass [Recovered/Resolved]
